FAERS Safety Report 7012615-5 (Version None)
Quarter: 2010Q3

REPORT INFORMATION
  Report Type: 
  Country: None (occurrence: None)
  Receive Date: 20100924
  Receipt Date: 20100914
  Transmission Date: 20110219
  Serious: Yes (Hospitalization)
  Sender: FDA-Public Use
  Company Number: CA-JNJFOC-20100906582

PATIENT
  Sex: Female
  Weight: 140 kg

DRUGS (3)
  1. REMICADE [Suspect]
     Indication: CROHN'S DISEASE
     Route: 042
  2. REMICADE [Suspect]
     Route: 042
  3. REMICADE [Suspect]
     Route: 042

REACTIONS (5)
  - ARTHRALGIA [None]
  - EPISCLERITIS [None]
  - FURUNCLE [None]
  - HEADACHE [None]
  - SALIVARY GLAND NEOPLASM [None]
